FAERS Safety Report 12587468 (Version 2)
Quarter: 2016Q4

REPORT INFORMATION
  Report Type: Spontaneous
  Country: JP (occurrence: JP)
  Receive Date: 20160725
  Receipt Date: 20161027
  Transmission Date: 20170207
  Serious: Yes (Death)
  Sender: FDA-Public Use
  Company Number: JP-PFIZER INC-2016347366

PATIENT
  Age: 65 Year
  Sex: Male
  Weight: 52 kg

DRUGS (6)
  1. NEXIUM [Concomitant]
     Active Substance: ESOMEPRAZOLE MAGNESIUM
     Dosage: UNK
     Route: 048
  2. CYRAMZA [Suspect]
     Active Substance: RAMUCIRUMAB
     Indication: GASTRIC CANCER
     Dosage: 450 MG, 1X/DAY
     Route: 041
     Dates: start: 20160414, end: 20160414
  3. SUCRALFATE. [Concomitant]
     Active Substance: SUCRALFATE
     Dosage: UNK
     Route: 048
  4. PACLITAXEL HOSPIRA [Suspect]
     Active Substance: PACLITAXEL
     Dosage: 100 MG, DAILY
     Route: 041
     Dates: start: 20160421, end: 20160421
  5. CYRAMZA [Suspect]
     Active Substance: RAMUCIRUMAB
     Dosage: 450 MG, 1X/DAY
     Route: 041
     Dates: start: 20160502, end: 20160502
  6. PACLITAXEL HOSPIRA [Suspect]
     Active Substance: PACLITAXEL
     Indication: GASTRIC CANCER
     Dosage: 120 MG, SINGLE
     Route: 041
     Dates: start: 20160414, end: 20160414

REACTIONS (1)
  - Myocardial infarction [Fatal]

NARRATIVE: CASE EVENT DATE: 20160502
